FAERS Safety Report 11603437 (Version 1)
Quarter: 2015Q4

REPORT INFORMATION
  Report Type: Spontaneous
  Country: US (occurrence: US)
  Receive Date: 20151007
  Receipt Date: 20151007
  Transmission Date: 20160304
  Serious: No
  Sender: FDA-Public Use
  Company Number: US-GLENMARK PHARMACEUTICALS INC, USA.-2014GMK011015

PATIENT
  Age: 86 Year
  Sex: Female

DRUGS (7)
  1. TROSPIUM CHLORIDE TABLETS [Suspect]
     Active Substance: TROSPIUM CHLORIDE
     Dosage: 0.5 DF, QD
     Route: 048
  2. CYSTISTATIN [Concomitant]
     Dosage: UNK
  3. TYLENOL [Concomitant]
     Active Substance: ACETAMINOPHEN
     Dosage: UNK
  4. SYNTHROID [Concomitant]
     Active Substance: LEVOTHYROXINE SODIUM
     Dosage: UNK
  5. CARBIDOPA LEVODOPA [Concomitant]
     Active Substance: CARBIDOPA\LEVODOPA
     Dosage: UNK
  6. VITAMINS NOS [Concomitant]
     Active Substance: VITAMINS
     Dosage: UNK
  7. BENICAR [Concomitant]
     Active Substance: OLMESARTAN MEDOXOMIL
     Dosage: UNK

REACTIONS (6)
  - Joint swelling [Recovered/Resolved]
  - Incorrect dose administered [None]
  - Herpes zoster [Recovered/Resolved]
  - Burning sensation [Recovered/Resolved]
  - Medication error [Recovered/Resolved]
  - Arthralgia [Recovered/Resolved]

NARRATIVE: CASE EVENT DATE: 201408
